FAERS Safety Report 5696698-0 (Version None)
Quarter: 2008Q2

REPORT INFORMATION
  Report Type: 
  Country: None (occurrence: None)
  Receive Date: 20080408
  Receipt Date: 20070731
  Transmission Date: 20081010
  Serious: Yes (Other)
  Sender: FDA-Public Use
  Company Number: US-BAYER-US-2006-030525

PATIENT
  Age: 48 Year
  Sex: Female
  Weight: 69 kg

DRUGS (3)
  1. YASMIN [Suspect]
     Indication: CONTRACEPTION
     Route: 048
     Dates: start: 20050101, end: 20060701
  2. YASMIN [Suspect]
     Route: 048
     Dates: start: 20060801
  3. NASAL SPRAY [Concomitant]

REACTIONS (4)
  - METRORRHAGIA [None]
  - OVARIAN CYST [None]
  - POLYMENORRHOEA [None]
  - VASCULAR NEOPLASM [None]
